FAERS Safety Report 16073129 (Version 1)
Quarter: 2019Q1

REPORT INFORMATION
  Report Type: Spontaneous
  Country: SE (occurrence: SE)
  Receive Date: 20190314
  Receipt Date: 20190314
  Transmission Date: 20190418
  Serious: Yes (Other)
  Sender: FDA-Public Use
  Company Number: IND-SE-009507513-1903SWE003686

PATIENT
  Age: 46 Year
  Sex: Female

DRUGS (9)
  1. PANODIL [Concomitant]
     Active Substance: ACETAMINOPHEN
     Dosage: UNK
  2. LOCOID [Concomitant]
     Active Substance: HYDROCORTISONE BUTYRATE
     Dosage: UNK
  3. FOLSYRE [Concomitant]
     Dosage: UNK
  4. SYMBICORT [Concomitant]
     Active Substance: BUDESONIDE\FORMOTEROL FUMARATE DIHYDRATE
     Dosage: UNK, AS NECESSARY
  5. HUMIRA [Concomitant]
     Active Substance: ADALIMUMAB
     Dosage: UNK
  6. BUVENTOL EASYHALER [Concomitant]
     Active Substance: ALBUTEROL SULFATE
     Dosage: UNK, AS NECESSARY
  7. ARCOXIA [Suspect]
     Active Substance: ETORICOXIB
     Indication: PSORIATIC ARTHROPATHY
     Dosage: UNK
     Route: 048
     Dates: start: 20181005
  8. PREDNISOLONE. [Concomitant]
     Active Substance: PREDNISOLONE
     Dosage: UNK
  9. DESLORATADINE MYLAN [Concomitant]
     Active Substance: DESLORATADINE
     Dosage: UNK

REACTIONS (2)
  - Asthma [Recovered/Resolved]
  - Dyspnoea [Recovered/Resolved]

NARRATIVE: CASE EVENT DATE: 201811
